FAERS Safety Report 6144628-X (Version None)
Quarter: 2009Q2

REPORT INFORMATION
  Report Type: 
  Country: None (occurrence: None)
  Receive Date: 20090406
  Receipt Date: 20090330
  Transmission Date: 20091009
  Serious: Yes (Hospitalization, Congenital Anomaly)
  Sender: FDA-Public Use
  Company Number: A0653467A

PATIENT
  Sex: Female
  Weight: 3.4 kg

DRUGS (8)
  1. PAXIL CR [Suspect]
     Indication: ANXIETY
     Dosage: 25MG PER DAY
     Dates: start: 20030101
  2. PAROXETINE HYDROCHLORIDE [Suspect]
     Indication: ANXIETY
     Dosage: 20MG PER DAY
     Dates: start: 20050301, end: 20050801
  3. PAROXETINE HYDROCHLORIDE [Suspect]
     Dates: start: 20050101, end: 20050101
  4. VITAMIN TAB [Concomitant]
     Dates: start: 20050301, end: 20050601
  5. PROMETHAZINE [Concomitant]
     Route: 061
     Dates: start: 20041201
  6. ZITHROMAX [Concomitant]
     Dates: start: 20050101
  7. BENZONATATE [Concomitant]
     Dates: start: 20050301
  8. RHINOCORT [Concomitant]
     Dates: start: 20050301

REACTIONS (22)
  - ANOXIA [None]
  - ANURIA [None]
  - ATRIAL SEPTAL DEFECT [None]
  - CARDIAC MURMUR [None]
  - CONVULSION [None]
  - DEVELOPMENTAL DELAY [None]
  - DRUG EXPOSURE DURING PREGNANCY [None]
  - DYSPNOEA [None]
  - FOETAL DISTRESS SYNDROME [None]
  - FOETAL HEART RATE DECELERATION [None]
  - GENERALISED OEDEMA [None]
  - HAEMATOCRIT DECREASED [None]
  - HYPOTONIA [None]
  - MECONIUM IN AMNIOTIC FLUID [None]
  - MUSCULAR WEAKNESS [None]
  - NEONATAL ASPHYXIA [None]
  - PALLOR [None]
  - PNEUMOTHORAX [None]
  - RESPIRATORY DISTRESS [None]
  - SEPSIS [None]
  - SPEECH DISORDER DEVELOPMENTAL [None]
  - VENTRICULAR SEPTAL DEFECT [None]
